FAERS Safety Report 8806435 (Version 1)
Quarter: 2012Q4

REPORT INFORMATION
  Report Type: Spontaneous
  Country: US (occurrence: None)
  Receive Date: 20120918
  Receipt Date: 20120918
  Transmission Date: 20130627
  Serious: No
  Sender: FDA-Public Use
  Company Number: None

PATIENT

DRUGS (2)
  1. HEPARIN SODIUM AND SODIUM CHLORIDE [Suspect]
  2. CALCIUM CHLORIDE [Suspect]

REACTIONS (5)
  - Drug dispensing error [None]
  - Activated partial thromboplastin time prolonged [None]
  - International normalised ratio increased [None]
  - Wrong drug administered [None]
  - Product barcode issue [None]
